FAERS Safety Report 7016907-5 (Version None)
Quarter: 2010Q3

REPORT INFORMATION
  Report Type: 
  Country: None (occurrence: None)
  Receive Date: 20100927
  Receipt Date: 20100920
  Transmission Date: 20110219
  Serious: Yes (Other)
  Sender: FDA-Public Use
  Company Number: US-AMGEN-KDL439894

PATIENT
  Sex: Female

DRUGS (1)
  1. ENBREL [Suspect]
     Indication: RHEUMATOID ARTHRITIS
     Route: 058
     Dates: start: 20060316

REACTIONS (12)
  - ABNORMAL LOSS OF WEIGHT [None]
  - ANXIETY [None]
  - CRYING [None]
  - DIZZINESS [None]
  - EAR INFECTION [None]
  - GASTROOESOPHAGEAL REFLUX DISEASE [None]
  - HEADACHE [None]
  - IRRITABLE BOWEL SYNDROME [None]
  - NAUSEA [None]
  - TREMOR [None]
  - UPPER RESPIRATORY TRACT INFECTION [None]
  - URINARY TRACT INFECTION [None]
